FAERS Safety Report 9337352 (Version 2)
Quarter: 2013Q4

REPORT INFORMATION
  Report Type: Report from Study
  Country: BR (occurrence: BR)
  Receive Date: 20130607
  Receipt Date: 20131003
  Transmission Date: 20140711
  Serious: Yes (Other)
  Sender: FDA-Public Use
  Company Number: PHHY2013BR057439

PATIENT
  Sex: Female

DRUGS (3)
  1. FORASEQ [Suspect]
     Indication: RHINITIS
     Dosage: 2 UNK, A DAY
     Dates: start: 201212
  2. FORASEQ [Suspect]
     Indication: OFF LABEL USE
     Dosage: 1 DF, PER DAY
     Dates: start: 201306
  3. FORASEQ [Suspect]
     Indication: ASTHMA

REACTIONS (6)
  - Sinusitis [Recovering/Resolving]
  - Malaise [Recovering/Resolving]
  - Pyrexia [Recovering/Resolving]
  - Rhinitis [Unknown]
  - Device malfunction [Unknown]
  - Fatigue [Recovered/Resolved]
